FAERS Safety Report 5680324-0 (Version None)
Quarter: 2008Q1

REPORT INFORMATION
  Report Type: 
  Country: None (occurrence: None)
  Receive Date: 20080326
  Receipt Date: 20080312
  Transmission Date: 20080703
  Serious: Yes (Other)
  Sender: FDA-Public Use
  Company Number: US-AMGEN-US269318

PATIENT
  Age: 51 Year
  Sex: Male

DRUGS (4)
  1. ARANESP [Suspect]
     Indication: ANAEMIA
  2. PROCRIT [Suspect]
     Indication: ANAEMIA
  3. RIBAVIRIN [Concomitant]
  4. INTERFERON [Concomitant]

REACTIONS (1)
  - APLASIA PURE RED CELL [None]
